FAERS Safety Report 7339534-9 (Version None)
Quarter: 2011Q1

REPORT INFORMATION
  Report Type: 
  Country: None (occurrence: None)
  Receive Date: 20110308
  Receipt Date: 20110201
  Transmission Date: 20110831
  Serious: No
  Sender: FDA-Public Use
  Company Number: US-AMGEN-USASP2010004119

PATIENT
  Age: 61 Year
  Sex: Female

DRUGS (6)
  1. COQ10 [Concomitant]
  2. PROLIA [Suspect]
     Indication: OSTEOPOROSIS POSTMENOPAUSAL
     Dosage: 60 MG, Q6MO
     Dates: start: 20100913
  3. CALCIUM WITH VITAMIN D             /00944201/ [Concomitant]
     Dosage: UNK
  4. B COMPLEX                          /00212701/ [Concomitant]
  5. PRAVASTATIN [Concomitant]
     Dosage: 40 MG, QD
  6. VITAMIN K TAB [Concomitant]

REACTIONS (2)
  - RASH PUSTULAR [None]
  - TOOTH DISORDER [None]
